FAERS Safety Report 14535960 (Version 3)
Quarter: 2024Q3

REPORT INFORMATION
  Report Type: Spontaneous
  Country: BE (occurrence: BE)
  Receive Date: 20180215
  Receipt Date: 20240818
  Transmission Date: 20241016
  Serious: Yes (Life-Threatening)
  Sender: AUROBINDO
  Company Number: BE-AUROBINDO-AUR-APL-2018-007660

PATIENT
  Age: 28 Year
  Sex: Female
  Weight: 58 kg

DRUGS (11)
  1. LAMOTRIGINE [Suspect]
     Active Substance: LAMOTRIGINE
     Indication: Bipolar disorder
     Dosage: 200 MILLIGRAM, ONCE A DAY
     Route: 048
     Dates: start: 20160801
  2. LAMOTRIGINE [Suspect]
     Active Substance: LAMOTRIGINE
     Dosage: 200 MILLIGRAM, ONCE A DAY
     Route: 048
     Dates: start: 20160601
  3. LAMOTRIGINE [Suspect]
     Active Substance: LAMOTRIGINE
     Dosage: 200 MILLIGRAM, ONCE A DAY
     Route: 048
     Dates: end: 20170523
  4. LAMOTRIGINE [Suspect]
     Active Substance: LAMOTRIGINE
     Dosage: 30 MG, QD
     Route: 048
  5. LAMOTRIGINE [Suspect]
     Active Substance: LAMOTRIGINE
     Dosage: 200 MILLIGRAM, ONCE A DAY
     Route: 048
     Dates: start: 20160601, end: 20170523
  6. LAMOTRIGINE [Suspect]
     Active Substance: LAMOTRIGINE
     Dosage: 30 MILLIGRAM, ONCE A DAY
     Route: 048
  7. TERBINAFINE [Suspect]
     Active Substance: TERBINAFINE
     Indication: Bipolar disorder
     Dosage: 250 MILLIGRAM, DAILY
     Route: 048
     Dates: start: 20170425
  8. TERBINAFINE [Suspect]
     Active Substance: TERBINAFINE
     Indication: Onychomycosis
  9. LAMISIL [Suspect]
     Active Substance: TERBINAFINE HYDROCHLORIDE
     Indication: Fungal foot infection
     Dosage: 1 DOSAGE FORM, ONCE A DAY  (TABLET)
     Route: 048
     Dates: start: 201704, end: 20170511
  10. ALPRAZOLAM [Concomitant]
     Active Substance: ALPRAZOLAM
     Indication: Insomnia
     Dosage: 0.25 MILLIGRAM (1/4 TABLET)
     Route: 048
     Dates: start: 20161101
  11. TRAZODONE [Concomitant]
     Active Substance: TRAZODONE HYDROCHLORIDE
     Indication: Insomnia
     Dosage: 25 MILLIGRAM, ONCE A DAY
     Route: 048
     Dates: start: 20160707

REACTIONS (4)
  - Solar dermatitis [Not Recovered/Not Resolved]
  - Photosensitivity reaction [Unknown]
  - Erythema [Recovered/Resolved]
  - Pruritus [Recovered/Resolved]

NARRATIVE: CASE EVENT DATE: 20170510
